FAERS Safety Report 17529696 (Version 1)
Quarter: 2020Q1

REPORT INFORMATION
  Report Type: Spontaneous
  Country: DK (occurrence: DK)
  Receive Date: 20200311
  Receipt Date: 20200311
  Transmission Date: 20200409
  Serious: Yes (Hospitalization)
  Sender: FDA-Public Use
  Company Number: DK-MYLANLABS-2020M1025818

PATIENT
  Age: 60 Year
  Sex: Male
  Weight: 74 kg

DRUGS (8)
  1. ATORVASTATIN [Concomitant]
     Active Substance: ATORVASTATIN
     Indication: HYPERCHOLESTEROLAEMIA
     Dosage: STYRKE: 40 MG
     Route: 048
     Dates: start: 2013
  2. BENDROZA [Concomitant]
     Active Substance: BENDROFLUMETHIAZIDE\POTASSIUM CHLORIDE
     Indication: HYPERTENSION
     Dosage: STYRKE: 2,5+573 MG
     Route: 048
     Dates: start: 2012
  3. FINASTERIDE. [Concomitant]
     Active Substance: FINASTERIDE
     Indication: PROSTATOMEGALY
     Dosage: STYRKE: 5 MG
     Route: 048
     Dates: start: 201810
  4. TRANDOLAPRIL. [Suspect]
     Active Substance: TRANDOLAPRIL
     Indication: HYPERTENSION
     Dosage: 4 MILLIGRAM, QD (STYRKE: 2 MG)
     Route: 048
     Dates: start: 1997
  5. BETMIGA [Concomitant]
     Active Substance: MIRABEGRON
     Indication: HYPERTONIC BLADDER
     Dosage: STYRKE: 25 MG
     Route: 048
     Dates: start: 2018, end: 2018
  6. XARELTO [Concomitant]
     Active Substance: RIVAROXABAN
     Indication: THROMBOSIS PROPHYLAXIS
     Dosage: STYRKE: 20 MG
     Route: 048
     Dates: start: 2013
  7. FELODIPINE. [Concomitant]
     Active Substance: FELODIPINE
     Indication: HYPERTENSION
     Dosage: STYRKE: 5 MG
     Route: 048
     Dates: start: 201804
  8. OMNISTAD [Concomitant]
     Indication: DYSURIA
     Dosage: STYRKE: 0,4 MG
     Route: 048
     Dates: start: 2013

REACTIONS (2)
  - Cardiac arrest [Recovered/Resolved]
  - Cerebral thrombosis [Recovered/Resolved]

NARRATIVE: CASE EVENT DATE: 20031211
